FAERS Safety Report 19902576 (Version 1)
Quarter: 2021Q3

REPORT INFORMATION
  Report Type: Report from Study
  Country: US (occurrence: US)
  Receive Date: 20210930
  Receipt Date: 20210930
  Transmission Date: 20211014
  Serious: Yes (Hospitalization)
  Sender: FDA-Public Use
  Company Number: US-SA-2021SA115064

PATIENT
  Age: 57 Year
  Sex: Male

DRUGS (2)
  1. AGALSIDASE BETA [Suspect]
     Active Substance: AGALSIDASE BETA
     Dosage: 105 MG, QOW
     Route: 042
     Dates: start: 20210719
  2. AGALSIDASE BETA [Suspect]
     Active Substance: AGALSIDASE BETA
     Indication: FABRY^S DISEASE
     Dosage: 105 MG, QOW
     Route: 042
     Dates: start: 20200713

REACTIONS (9)
  - Throat irritation [Unknown]
  - Anxiety [Unknown]
  - Product dose omission issue [Unknown]
  - Fluid overload [Unknown]
  - Somnolence [Unknown]
  - Pain [Unknown]
  - Unevaluable event [Unknown]
  - Cough [Unknown]
  - Condition aggravated [Unknown]

NARRATIVE: CASE EVENT DATE: 20210405
